FAERS Safety Report 18766238 (Version 6)
Quarter: 2021Q1

REPORT INFORMATION
  Report Type: Spontaneous
  Country: US (occurrence: US)
  Receive Date: 20210120
  Receipt Date: 20210218
  Transmission Date: 20210419
  Serious: No
  Sender: FDA-Public Use
  Company Number: US-JNJFOC-20210121094

PATIENT
  Age: 64 Year
  Sex: Male

DRUGS (1)
  1. SIMPONI [Suspect]
     Active Substance: GOLIMUMAB
     Indication: RHEUMATOID ARTHRITIS
     Dosage: BATCH NUMBER: JKS09MB, 19K121MC, 20A101MC, AND 20A101MD EXPIRY: /OCT/2021,//2021,//2022,FEB/2022
     Route: 058
     Dates: start: 202009

REACTIONS (3)
  - Drug delivery system malfunction [Unknown]
  - Underdose [Unknown]
  - Injection site haemorrhage [Unknown]

NARRATIVE: CASE EVENT DATE: 202009
